FAERS Safety Report 6927704-0 (Version None)
Quarter: 2010Q3

REPORT INFORMATION
  Report Type: 
  Country: None (occurrence: None)
  Receive Date: 20100816
  Receipt Date: 20100816
  Transmission Date: 20110219
  Serious: Yes (Hospitalization)
  Sender: FDA-Public Use
  Company Number: None

PATIENT
  Age: 60 Year
  Sex: Male
  Weight: 61.6892 kg

DRUGS (2)
  1. AMOXICILLIN [Suspect]
     Indication: ACNE
     Dosage: 500 MG TID PO
     Route: 048
     Dates: start: 20100625, end: 20100627
  2. AMOXICILLIN [Suspect]
     Indication: ROSACEA
     Dosage: 500 MG TID PO
     Route: 048
     Dates: start: 20100625, end: 20100627

REACTIONS (1)
  - RASH [None]
